FAERS Safety Report 6886429-0 (Version None)
Quarter: 2010Q3

REPORT INFORMATION
  Report Type: 
  Country: None (occurrence: None)
  Receive Date: 20100729
  Receipt Date: 20090522
  Transmission Date: 20110219
  Serious: No
  Sender: FDA-Public Use
  Company Number: US-PFIZER INC-2009194501

PATIENT
  Sex: Female
  Weight: 126.98 kg

DRUGS (1)
  1. CELEBREX [Suspect]
     Indication: ARTHRITIS

REACTIONS (3)
  - BLOOD URINE PRESENT [None]
  - HYPERSENSITIVITY [None]
  - PULMONARY THROMBOSIS [None]
